FAERS Safety Report 7715897-7 (Version None)
Quarter: 2011Q3

REPORT INFORMATION
  Report Type: 
  Country: None (occurrence: None)
  Receive Date: 20110823
  Receipt Date: 20110809
  Transmission Date: 20111222
  Serious: Yes (Other)
  Sender: FDA-Public Use
  Company Number: 1000003970

PATIENT
  Age: 76 Year
  Sex: Male
  Weight: 61 kg

DRUGS (8)
  1. AZULAVINE (AZULENE) (AZULENE) [Concomitant]
  2. FOLIAMIN (FOLIC ACID) (FOLIC ACID) [Concomitant]
  3. MOHRUS (KETOPROFEN) (KETOPROFEN) [Concomitant]
  4. FLIVAS (NAFTOPIDIL) (NAFTOPIDIL) [Concomitant]
  5. VESICARE (SOLIFENACIN SUCCINATE) (SOKIFENACIN SUCCINATE) [Concomitant]
  6. ARICEPT D(DONEPEZIL HYDROCHLORIDE) (DONEPEZIL HYDROCHLORIDE) [Concomitant]
  7. MEMANTINE [Suspect]
     Indication: DEMENTIA ALZHEIMER'S TYPE
     Dosage: 20 MG (20 MG, 1 IN 1 D) , ORAL
     Route: 048
     Dates: start: 20070123
  8. KARY UNI (PERENOXINE SODIUM) (PIRENOXINE SODIUM) [Concomitant]

REACTIONS (1)
  - PROSTATE CANCER STAGE II [None]
